FAERS Safety Report 6986663-5 (Version None)
Quarter: 2010Q3

REPORT INFORMATION
  Report Type: 
  Country: None (occurrence: None)
  Receive Date: 20100915
  Receipt Date: 20090730
  Transmission Date: 20110219
  Serious: No
  Sender: FDA-Public Use
  Company Number: US-WYE-H10396409

PATIENT
  Sex: Female
  Weight: 59.02 kg

DRUGS (1)
  1. PRISTIQ [Suspect]
     Indication: DEPRESSION
     Dosage: DOSE REDUCTION FROM 1 TABLET DAILY (50 MG DAILY) TO 1/4 TABLET TO 1/8 TABLET
     Route: 048

REACTIONS (5)
  - AMNESIA [None]
  - DISTURBANCE IN ATTENTION [None]
  - DRUG WITHDRAWAL SYNDROME [None]
  - INSOMNIA [None]
  - THERAPEUTIC REACTION TIME DECREASED [None]
